FAERS Safety Report 12680424 (Version 5)
Quarter: 2016Q4

REPORT INFORMATION
  Report Type: Spontaneous
  Country: FR (occurrence: FR)
  Receive Date: 20160824
  Receipt Date: 20161107
  Transmission Date: 20170207
  Serious: Yes (Life-Threatening, Other)
  Sender: FDA-Public Use
  Company Number: FR-PFIZER INC-2016389678

PATIENT
  Age: 72 Year
  Sex: Male

DRUGS (9)
  1. VIDAZA [Suspect]
     Active Substance: AZACITIDINE
     Dosage: UNK
     Dates: start: 20160314, end: 20160318
  2. VIDAZA [Suspect]
     Active Substance: AZACITIDINE
     Dosage: UNK
     Dates: start: 20160418, end: 20160422
  3. VIDAZA [Suspect]
     Active Substance: AZACITIDINE
     Dosage: 37.5 MG/M2, UNK
     Dates: start: 20160614, end: 20160620
  4. VIDAZA [Suspect]
     Active Substance: AZACITIDINE
     Dosage: UNK
     Dates: start: 20160106, end: 20160114
  5. CALCIPARINE [Suspect]
     Active Substance: HEPARIN CALCIUM
     Indication: THROMBOSIS PROPHYLAXIS
     Dosage: UNK
     Route: 058
     Dates: start: 20160711
  6. TAZOCILLINE [Suspect]
     Active Substance: PIPERACILLIN SODIUM\TAZOBACTAM SODIUM
     Indication: FEBRILE BONE MARROW APLASIA
     Dosage: UNK
     Route: 042
     Dates: start: 20160711, end: 20160720
  7. EUPANTOL [Suspect]
     Active Substance: PANTOPRAZOLE SODIUM
     Dosage: UNK
     Route: 042
     Dates: start: 20160711, end: 20160720
  8. VIDAZA [Suspect]
     Active Substance: AZACITIDINE
     Indication: REFRACTORY ANAEMIA WITH AN EXCESS OF BLASTS
     Dosage: UNK
     Dates: start: 20151209, end: 20151217
  9. VIDAZA [Suspect]
     Active Substance: AZACITIDINE
     Dosage: UNK
     Dates: start: 20160517, end: 20160523

REACTIONS (5)
  - Bone marrow failure [Not Recovered/Not Resolved]
  - Pancytopenia [Not Recovered/Not Resolved]
  - Anaemia [Not Recovered/Not Resolved]
  - Neutropenia [Not Recovered/Not Resolved]
  - Thrombocytopenia [Not Recovered/Not Resolved]

NARRATIVE: CASE EVENT DATE: 20160716
